FAERS Safety Report 9134571 (Version 2)
Quarter: 2013Q3

REPORT INFORMATION
  Report Type: Report from Study
  Country: US (occurrence: US)
  Receive Date: 20130304
  Receipt Date: 20130716
  Transmission Date: 20140515
  Serious: Yes (Other)
  Sender: FDA-Public Use
  Company Number: US-ELI_LILLY_AND_COMPANY-US201302008826

PATIENT
  Age: 65 Year
  Sex: Female

DRUGS (2)
  1. TERIPARATIDE [Suspect]
     Dosage: UNK UNK, QD
     Route: 065
     Dates: start: 20130219
  2. CALCIUM [Suspect]
     Dosage: UNK, UNKNOWN
     Route: 065

REACTIONS (10)
  - Respiratory distress [Unknown]
  - Influenza like illness [Unknown]
  - Abdominal pain upper [Unknown]
  - Pain in extremity [Unknown]
  - Nasopharyngitis [Recovered/Resolved]
  - Abdominal discomfort [Unknown]
  - Arthralgia [Unknown]
  - Arthralgia [Unknown]
  - Arthralgia [Unknown]
  - Arthralgia [Unknown]
